FAERS Safety Report 9087818 (Version 3)
Quarter: 2013Q1

REPORT INFORMATION
  Report Type: Spontaneous
  Country: US (occurrence: US)
  Receive Date: 20130201
  Receipt Date: 20130308
  Transmission Date: 20140127
  Serious: Yes (Other)
  Sender: FDA-Public Use
  Company Number: US-BAYER-2013-011228

PATIENT
  Age: 50 Year
  Sex: Female
  Weight: 49.43 kg

DRUGS (3)
  1. MIRENA [Suspect]
     Indication: MENORRHAGIA
     Dosage: 20 MCG/24HR, CONT
     Route: 015
     Dates: start: 20121003
  2. VIVELLE [Suspect]
     Dosage: UNK
  3. DOXYCYCLINE [Concomitant]
     Dosage: 100 MG, BID
     Route: 048

REACTIONS (2)
  - Genital haemorrhage [Recovering/Resolving]
  - Drug ineffective [None]
